FAERS Safety Report 9124614 (Version 1)
Quarter: 2013Q1

REPORT INFORMATION
  Report Type: Report from Study
  Country: DE (occurrence: DE)
  Receive Date: 20130117
  Receipt Date: 20130117
  Transmission Date: 20140127
  Serious: Yes (Hospitalization)
  Sender: FDA-Public Use
  Company Number: DE-PFIZER INC-2012211422

PATIENT
  Age: 51 Year
  Sex: Female
  Weight: 87.5 kg

DRUGS (10)
  1. GENOTROPIN [Suspect]
     Dosage: 0.3 MG, 7-WK
     Route: 058
     Dates: start: 20010924
  2. CROMOGLICIC ACID [Concomitant]
     Indication: ASTHMA
     Dosage: UNK
     Dates: start: 20000315
  3. REPROTEROL HYDROCHLORIDE [Concomitant]
     Indication: ASTHMA
     Dosage: UNK
     Dates: start: 20000315
  4. FLUTICASONE [Concomitant]
     Indication: ASTHMA
     Dosage: UNK
     Dates: start: 20000315
  5. LISINO [Concomitant]
     Indication: HYPERSENSITIVITY
     Dosage: UNK
     Dates: start: 20000315
  6. ESTRADIOL VALERATE [Concomitant]
     Indication: AMENORRHOEA
     Dosage: UNK
     Dates: start: 20000328
  7. NORGESTREL [Concomitant]
     Indication: AMENORRHOEA
     Dosage: UNK
     Dates: start: 20000328
  8. SAINT JOHN^S WORT [Concomitant]
     Indication: PSYCHOTIC DISORDER
     Dosage: UNK
     Dates: start: 20010507
  9. MEDROXYPROGESTERONE ACETATE [Concomitant]
     Indication: ENDOMETRIOSIS
     Dosage: UNK
     Dates: start: 20011002
  10. VIANI [Concomitant]
     Indication: ASTHMA
     Dosage: UNK
     Dates: start: 20020715

REACTIONS (2)
  - Meniscus injury [Unknown]
  - Epicondylitis [Unknown]
